FAERS Safety Report 15744567 (Version 1)
Quarter: 2018Q4

REPORT INFORMATION
  Report Type: Spontaneous
  Country: US (occurrence: US)
  Receive Date: 20181205
  Receipt Date: 20181205
  Transmission Date: 20190205
  Serious: Yes (Death)
  Sender: FDA-Public Use
  Company Number: None

PATIENT
  Age: 31 Month
  Sex: Male
  Weight: 10.5 kg

DRUGS (6)
  1. DEXAMETHASONE. [Concomitant]
     Active Substance: DEXAMETHASONE
  2. ETOPOSIDE. [Concomitant]
     Active Substance: ETOPOSIDE
  3. CYCLOPHOSPHAMIDE  (26271) [Suspect]
     Active Substance: CYCLOPHOSPHAMIDE
  4. METHOTREXATE. [Suspect]
     Active Substance: METHOTREXATE
  5. VINCRISTINE SULFATE. [Concomitant]
     Active Substance: VINCRISTINE SULFATE
  6. ONCASPAR [Suspect]
     Active Substance: PEGASPARGASE

REACTIONS (8)
  - Hypotension [None]
  - Tachypnoea [None]
  - Opportunistic infection [None]
  - Tachycardia [None]
  - Oxygen saturation decreased [None]
  - Pyrexia [None]
  - Pneumonia [None]
  - Bradycardia [None]

NARRATIVE: CASE EVENT DATE: 20161116
